FAERS Safety Report 17045501 (Version 2)
Quarter: 2019Q4

REPORT INFORMATION
  Report Type: Spontaneous
  Country: CA (occurrence: CA)
  Receive Date: 20191118
  Receipt Date: 20191201
  Transmission Date: 20200122
  Serious: Yes (Other)
  Sender: FDA-Public Use
  Company Number: NVSC2019CA038785

PATIENT
  Sex: Female

DRUGS (1)
  1. OCTREOTIDE. [Suspect]
     Active Substance: OCTREOTIDE
     Indication: CHYLOTHORAX
     Dosage: UNK
     Route: 065

REACTIONS (4)
  - Feeding disorder [Unknown]
  - Failure to thrive [Unknown]
  - Pleural effusion [Unknown]
  - Drug ineffective [Unknown]
